FAERS Safety Report 13886006 (Version 5)
Quarter: 2020Q3

REPORT INFORMATION
  Report Type: Report from Study
  Country: US (occurrence: US)
  Receive Date: 20170821
  Receipt Date: 20200803
  Transmission Date: 20201102
  Serious: Yes (Hospitalization, Other)
  Sender: FDA-Public Use
  Company Number: US-SA-2017SA136389

PATIENT

DRUGS (5)
  1. ALEMTUZUMAB [Suspect]
     Active Substance: ALEMTUZUMAB
     Indication: MULTIPLE SCLEROSIS
     Dosage: 12 MG,QD
     Route: 041
     Dates: start: 20170705, end: 20170707
  2. ALEMTUZUMAB [Suspect]
     Active Substance: ALEMTUZUMAB
     Dosage: 12 MG, QD
     Route: 041
     Dates: start: 20160705, end: 20160705
  3. ALEMTUZUMAB [Suspect]
     Active Substance: ALEMTUZUMAB
     Dosage: 12 MG, QD
     Route: 041
     Dates: start: 20160730, end: 20160730
  4. ALEMTUZUMAB [Suspect]
     Active Substance: ALEMTUZUMAB
     Dosage: 12 MG, QD
     Route: 041
     Dates: start: 20160724, end: 20160724
  5. ALEMTUZUMAB [Suspect]
     Active Substance: ALEMTUZUMAB
     Dosage: 12 MG, QD
     Route: 041
     Dates: start: 20160727, end: 20160728

REACTIONS (14)
  - Neutropenia [Recovered/Resolved]
  - Herpes zoster [Not Recovered/Not Resolved]
  - Rash [Not Recovered/Not Resolved]
  - Melanocytic naevus [Unknown]
  - Pyrexia [Unknown]
  - Dyspnoea [Recovered/Resolved]
  - White blood cell count decreased [Not Recovered/Not Resolved]
  - Off label use [Unknown]
  - Headache [Recovered/Resolved]
  - Pain [Recovered/Resolved]
  - Pain [Not Recovered/Not Resolved]
  - Pruritus [Not Recovered/Not Resolved]
  - Nausea [Recovered/Resolved]
  - Abdominal pain [Recovered/Resolved]

NARRATIVE: CASE EVENT DATE: 2017
